FAERS Safety Report 7103016-X (Version None)
Quarter: 2010Q4

REPORT INFORMATION
  Report Type: 
  Country: None (occurrence: None)
  Receive Date: 20101115
  Receipt Date: 20101103
  Transmission Date: 20110411
  Serious: Yes (Hospitalization)
  Sender: FDA-Public Use
  Company Number: FR-JNJFOC-20101104043

PATIENT
  Sex: Male

DRUGS (11)
  1. IXPRIM [Suspect]
     Indication: PRODUCT USED FOR UNKNOWN INDICATION
     Dosage: 37.5 / 325 MG
     Route: 048
  2. LYRICA [Suspect]
     Indication: PRODUCT USED FOR UNKNOWN INDICATION
     Route: 048
  3. LYRICA [Suspect]
     Route: 048
  4. KARDEGIC [Concomitant]
  5. RIVOTRIL [Concomitant]
  6. AVODART [Concomitant]
  7. OGAST [Concomitant]
  8. MACROGOL [Concomitant]
  9. LEVOTHYROXINE SODIUM [Concomitant]
  10. TRIMETAZIDINE HYDROCHLORIDE [Concomitant]
  11. ARCALION [Concomitant]

REACTIONS (3)
  - ABNORMAL BEHAVIOUR [None]
  - MALAISE [None]
  - WITHDRAWAL SYNDROME [None]
